FAERS Safety Report 24181782 (Version 1)
Quarter: 2024Q3

REPORT INFORMATION
  Report Type: Spontaneous
  Country: US (occurrence: None)
  Receive Date: 20240807
  Receipt Date: 20240807
  Transmission Date: 20241016
  Serious: No
  Sender: ASTRAZENECA
  Company Number: 2024A169392

PATIENT
  Sex: Female

DRUGS (1)
  1. FARXIGA [Suspect]
     Active Substance: DAPAGLIFLOZIN PROPANEDIOL
     Route: 048

REACTIONS (7)
  - Fungal infection [Unknown]
  - Gait disturbance [Unknown]
  - Movement disorder [Unknown]
  - Pruritus [Unknown]
  - Muscle strain [Unknown]
  - Renal disorder [Unknown]
  - Back pain [Unknown]
